FAERS Safety Report 10434913 (Version 1)
Quarter: 2014Q3

REPORT INFORMATION
  Report Type: Spontaneous
  Country: US (occurrence: None)
  Receive Date: 20140815
  Receipt Date: 20140815
  Transmission Date: 20150326
  Serious: Yes (Hospitalization)
  Sender: FDA-Public Use
  Company Number: 2014TUS002526

PATIENT
  Age: 52 Year
  Sex: Female
  Weight: 79.8 kg

DRUGS (1)
  1. BRINTELLIX [Suspect]
     Active Substance: VORTIOXETINE HYDROBROMIDE
     Indication: DEPRESSION
     Route: 048
     Dates: start: 20140312, end: 20140319

REACTIONS (3)
  - Nausea [None]
  - Headache [None]
  - Dizziness [None]
